FAERS Safety Report 6133347-1 (Version None)
Quarter: 2009Q1

REPORT INFORMATION
  Report Type: 
  Country: None (occurrence: None)
  Receive Date: 20090325
  Receipt Date: 20090325
  Transmission Date: 20090719
  Serious: Yes (Disabling, Other)
  Sender: FDA-Public Use
  Company Number: None

PATIENT
  Age: 58 Year
  Sex: Female
  Weight: 59.2 kg

DRUGS (1)
  1. SARGRAMOSTIM 500MCG BAYER [Suspect]
     Indication: NEUTROPENIA
     Dosage: 250MCG ONCE SQ
     Dates: start: 20090323, end: 20090323

REACTIONS (1)
  - HYPOTENSION [None]
